FAERS Safety Report 6789047-8 (Version None)
Quarter: 2010Q2

REPORT INFORMATION
  Report Type: 
  Country: None (occurrence: None)
  Receive Date: 20100623
  Receipt Date: 20080827
  Transmission Date: 20101027
  Serious: No
  Sender: FDA-Public Use
  Company Number: US-PFIZER INC-2008048965

PATIENT
  Sex: Female

DRUGS (10)
  1. GEODON [Suspect]
     Indication: AFFECTIVE DISORDER
     Route: 048
     Dates: start: 20060901
  2. GABAPENTIN [Suspect]
  3. DOXEPIN HCL [Suspect]
  4. FLEXERIL [Suspect]
  5. EFFEXOR [Suspect]
  6. CLONAZEPAM [Suspect]
  7. VICODIN [Concomitant]
  8. FIORICET W/ CODEINE [Concomitant]
  9. AMBIEN [Concomitant]
  10. PERCOCET [Concomitant]

REACTIONS (3)
  - DYSARTHRIA [None]
  - FATIGUE [None]
  - SOMNOLENCE [None]
